FAERS Safety Report 16775378 (Version 1)
Quarter: 2019Q3

REPORT INFORMATION
  Report Type: Spontaneous
  Country: US (occurrence: US)
  Receive Date: 20190905
  Receipt Date: 20190905
  Transmission Date: 20191005
  Serious: Yes (Other)
  Sender: FDA-Public Use
  Company Number: US-BIODELIVERY SCIENCES INTERNATIONAL-2019BDSI0747

PATIENT
  Sex: Female

DRUGS (3)
  1. PARACETAMOL/HYDROCODONE BITARTRATE [Concomitant]
     Indication: PRODUCT USED FOR UNKNOWN INDICATION
     Dosage: UNKNOWN; UNKNOWN
     Route: 048
  2. BUPRENORPHINE. [Suspect]
     Active Substance: BUPRENORPHINE
     Indication: PAIN
     Dosage: UNKNOWN; UNKNOWN
     Route: 002
     Dates: start: 201908, end: 201908
  3. CARISOPRODOL. [Concomitant]
     Active Substance: CARISOPRODOL
     Indication: PRODUCT USED FOR UNKNOWN INDICATION
     Dosage: UNKNOWN; UNKNOWN
     Route: 065

REACTIONS (3)
  - Hypersensitivity [Recovered/Resolved]
  - Drug withdrawal syndrome [Recovered/Resolved]
  - Oesophageal oedema [Recovered/Resolved]

NARRATIVE: CASE EVENT DATE: 201908
